FAERS Safety Report 26088926 (Version 2)
Quarter: 2025Q4

REPORT INFORMATION
  Report Type: Spontaneous
  Country: EU (occurrence: EU)
  Receive Date: 20251125
  Receipt Date: 20251224
  Transmission Date: 20260118
  Serious: Yes (Hospitalization, Other)
  Sender: ELI LILLY AND COMPANY
  Company Number: None

PATIENT
  Age: 60 Year
  Sex: Female
  Weight: 69 kg

DRUGS (22)
  1. PEMETREXED [Suspect]
     Active Substance: PEMETREXED
     Indication: Lung adenocarcinoma
     Dosage: 875 MG, CYCLICAL
     Route: 042
     Dates: start: 20250521
  2. PEMETREXED [Suspect]
     Active Substance: PEMETREXED
     Dosage: 875 MG, CYCLICAL
     Route: 042
     Dates: start: 20250611
  3. PEMETREXED [Suspect]
     Active Substance: PEMETREXED
     Dosage: 875 MG, CYCLICAL
     Route: 042
     Dates: start: 20250702
  4. PEMETREXED [Suspect]
     Active Substance: PEMETREXED
     Dosage: UNK UNK, UNKNOWN (20% DOSE REDUCTION)
     Route: 042
     Dates: start: 20250729
  5. PEMETREXED [Suspect]
     Active Substance: PEMETREXED
     Dosage: 700 MG, CYCLICAL
     Route: 042
     Dates: start: 20250730
  6. AMIVANTAMAB [Suspect]
     Active Substance: AMIVANTAMAB
     Indication: Lung adenocarcinoma
     Dosage: 1400 MG, CYCLICAL
     Route: 042
     Dates: start: 20250521
  7. AMIVANTAMAB [Suspect]
     Active Substance: AMIVANTAMAB
     Dosage: UNK UNK, CYCLICAL (20% DOSE REDUCTION)
     Route: 042
     Dates: start: 20250729
  8. AMIVANTAMAB [Suspect]
     Active Substance: AMIVANTAMAB
     Dosage: 1400 MG, CYCLICAL
     Route: 042
     Dates: start: 20250729
  9. CARBOPLATIN [Suspect]
     Active Substance: CARBOPLATIN
     Indication: Lung adenocarcinoma
     Dosage: 700 MG, CYCLICAL
     Route: 042
     Dates: start: 20250521
  10. CARBOPLATIN [Suspect]
     Active Substance: CARBOPLATIN
     Dosage: 700 MG, CYCLICAL
     Route: 042
     Dates: start: 20250611
  11. CARBOPLATIN [Suspect]
     Active Substance: CARBOPLATIN
     Dosage: 690 MG, CYCLICAL
     Route: 042
     Dates: start: 20250702
  12. CARBOPLATIN [Suspect]
     Active Substance: CARBOPLATIN
     Dosage: UNK UNK, UNKNOWN (20% DOSE REDUCTION)
     Route: 042
     Dates: start: 20250729
  13. CARBOPLATIN [Suspect]
     Active Substance: CARBOPLATIN
     Dosage: 500 MG, CYCLICAL
     Route: 042
     Dates: start: 20250730
  14. BISOPROLOL FUMARATE [Concomitant]
     Active Substance: BISOPROLOL FUMARATE
     Indication: Product used for unknown indication
     Dosage: 1.25 MG MORNING AND EVENING
  15. VERAPAMIL HYDROCHLORIDE [Concomitant]
     Active Substance: VERAPAMIL HYDROCHLORIDE
     Indication: Obstruction gastric
     Dosage: 120 MG
  16. FOLIC ACID [Concomitant]
     Active Substance: FOLIC ACID
     Indication: Product used for unknown indication
     Dosage: 0.4 MG IN THE MORNING
  17. VITAMIN B12 [Concomitant]
     Active Substance: CYANOCOBALAMIN
     Indication: Product used for unknown indication
     Dosage: EVERY 9 WEEKS
     Dates: end: 20250708
  18. OXAZEPAM [Concomitant]
     Active Substance: OXAZEPAM
     Indication: Product used for unknown indication
     Dosage: 10 MG IN EVENING
  19. DOXYCYCLINE [Concomitant]
     Active Substance: DOXYCYCLINE
     Indication: Product used for unknown indication
     Dosage: 100 MG 2 TABLETS IN THE EVENING
  20. CLOBEX [Concomitant]
     Active Substance: CLOBETASOL PROPIONATE
     Indication: Product used for unknown indication
  21. HIBISCRUB [CHLORHEXIDINE] [Concomitant]
     Indication: Product used for unknown indication
     Dosage: 1% FOAMING SOLUTION, 1/DAY ON HANDS AND FEET; SKIN EMOLLIENTS, 1/DAY AFTER SHOWERING
  22. SODIUM BICARBONATE [Concomitant]
     Active Substance: SODIUM BICARBONATE
     Indication: Product used for unknown indication
     Dosage: 1.4%, 4-6/DAY

REACTIONS (5)
  - Aortic thrombosis [Recovering/Resolving]
  - Pneumonia [Unknown]
  - Intracardiac mass [Unknown]
  - Medical device site thrombosis [Unknown]
  - Supraventricular tachycardia [Unknown]

NARRATIVE: CASE EVENT DATE: 20250630
